FAERS Safety Report 5038646-2 (Version None)
Quarter: 2006Q2

REPORT INFORMATION
  Report Type: 
  Country: None (occurrence: None)
  Receive Date: 20060629
  Receipt Date: 20060619
  Transmission Date: 20061013
  Serious: Yes (Life-Threatening, Hospitalization)
  Sender: FDA-Public Use
  Company Number: FR-BRISTOL-MYERS SQUIBB COMPANY-13417100

PATIENT
  Age: 20 Month
  Sex: Male

DRUGS (1)
  1. LOPRIL TABS [Suspect]
     Dosage: PRESCRIBED DOSAGE = 9 MG TID
     Route: 048
     Dates: start: 20060507, end: 20060520

REACTIONS (4)
  - ACCIDENTAL OVERDOSE [None]
  - CARDIAC FAILURE [None]
  - CIRCULATORY COLLAPSE [None]
  - DRUG ADMINISTRATION ERROR [None]
